FAERS Safety Report 7429856-5 (Version None)
Quarter: 2011Q2

REPORT INFORMATION
  Report Type: 
  Country: None (occurrence: None)
  Receive Date: 20110421
  Receipt Date: 20080625
  Transmission Date: 20111010
  Serious: Yes (Other)
  Sender: FDA-Public Use
  Company Number: US-BAYER-200827164NA

PATIENT
  Age: 76 Year
  Sex: Female
  Weight: 78.458 kg

DRUGS (9)
  1. ACETYLSALICYLIC ACID SRT [Concomitant]
  2. AMILORIDE HYDROCHLORIDE [Concomitant]
     Dosage: 5 MG, QID
  3. SYNTHROID [Concomitant]
     Dosage: 175 MICROGRAMS QD
  4. MEVACOR [Concomitant]
     Dosage: 60 MG, QD
  5. COZAAR [Concomitant]
     Dosage: 50 MG, QD
  6. NITROGLYCERIN [Concomitant]
     Dosage: 10 MCG
     Route: 042
  7. TRASYLOL [Suspect]
     Indication: CORONARY ARTERY BYPASS
     Dosage: 200 CC LOADING DOSE
     Dates: start: 20060716
  8. ARTHROTEC [Concomitant]
     Dosage: 75 MG, BID
  9. VANCOMYCIN [Concomitant]
     Route: 042

REACTIONS (12)
  - EMOTIONAL DISTRESS [None]
  - PAIN [None]
  - ANHEDONIA [None]
  - RENAL FAILURE [None]
  - STRESS [None]
  - UNEVALUABLE EVENT [None]
  - ANXIETY [None]
  - ILL-DEFINED DISORDER [None]
  - INJURY [None]
  - FEAR [None]
  - RENAL IMPAIRMENT [None]
  - RENAL INJURY [None]
